FAERS Safety Report 6715859-2 (Version None)
Quarter: 2010Q2

REPORT INFORMATION
  Report Type: 
  Country: None (occurrence: None)
  Receive Date: 20100507
  Receipt Date: 20100429
  Transmission Date: 20101027
  Serious: Yes (Other)
  Sender: FDA-Public Use
  Company Number: PT-AMGEN-QUU406517

PATIENT
  Sex: Male

DRUGS (5)
  1. VECTIBIX [Suspect]
     Indication: COLORECTAL CANCER
     Route: 042
     Dates: start: 20100202, end: 20100202
  2. FLUOROURACIL [Concomitant]
  3. CORTICOSTEROIDS [Concomitant]
  4. FUROSEMIDE [Concomitant]
  5. UNSPECIFIED MEDICATION [Concomitant]

REACTIONS (2)
  - CARDIAC FAILURE CONGESTIVE [None]
  - PULMONARY OEDEMA [None]
